FAERS Safety Report 14691470 (Version 1)
Quarter: 2018Q1

REPORT INFORMATION
  Report Type: Spontaneous
  Country: US (occurrence: US)
  Receive Date: 20180328
  Receipt Date: 20180328
  Transmission Date: 20180509
  Serious: Yes (Hospitalization, Other)
  Sender: FDA-Public Use
  Company Number: US-ASTRAZENECA-2018SE35948

PATIENT
  Sex: Male

DRUGS (8)
  1. TUDORZA PRESSAIR [Suspect]
     Active Substance: ACLIDINIUM BROMIDE
     Indication: EMPHYSEMA
     Route: 055
  2. TUDORZA PRESSAIR [Suspect]
     Active Substance: ACLIDINIUM BROMIDE
     Indication: LUNG DISORDER
     Route: 055
  3. TYLENOL [Concomitant]
     Active Substance: ACETAMINOPHEN
  4. CEFALEXIN [Concomitant]
     Active Substance: CEPHALEXIN
  5. BUTALBITAL [Concomitant]
     Active Substance: BUTALBITAL
  6. AUGMENTIN [Concomitant]
     Active Substance: AMOXICILLIN\CLAVULANATE POTASSIUM
  7. CIPRO [Concomitant]
     Active Substance: CIPROFLOXACIN HYDROCHLORIDE
  8. ADVIL [Concomitant]
     Active Substance: IBUPROFEN

REACTIONS (19)
  - Dehydration [Recovered/Resolved]
  - Cystitis escherichia [Unknown]
  - Pollakiuria [Unknown]
  - Procedural pneumothorax [Recovered/Resolved]
  - Loss of consciousness [Recovered/Resolved]
  - Cataract [Recovered/Resolved]
  - Post procedural haemorrhage [Recovered/Resolved]
  - Insomnia [Not Recovered/Not Resolved]
  - Micturition urgency [Not Recovered/Not Resolved]
  - Renal impairment [Recovering/Resolving]
  - Migraine [Recovering/Resolving]
  - Chills [Recovering/Resolving]
  - Pulmonary fibrosis [Unknown]
  - Urinary retention [Not Recovered/Not Resolved]
  - Vision blurred [Unknown]
  - Hernia [Recovered/Resolved]
  - Atypical mycobacterial infection [Not Recovered/Not Resolved]
  - Pneumonia [Unknown]
  - Bladder disorder [Not Recovered/Not Resolved]

NARRATIVE: CASE EVENT DATE: 2001
